FAERS Safety Report 4848171-7 (Version None)
Quarter: 2005Q4

REPORT INFORMATION
  Report Type: 
  Country: None (occurrence: None)
  Receive Date: 20051208
  Receipt Date: 20051128
  Transmission Date: 20060501
  Serious: Yes (Other)
  Sender: FDA-Public Use
  Company Number: US-SANOFI-SYNTHELABO-A03200503897

PATIENT
  Sex: Male
  Weight: 79.4 kg

DRUGS (3)
  1. UROXATRAL [Suspect]
     Indication: BENIGN PROSTATIC HYPERPLASIA
     Route: 048
     Dates: start: 20050901
  2. DIGOXIN [Concomitant]
     Dosage: UNK
     Route: 048
  3. FLECAINIDE ACETATE [Concomitant]
     Dosage: UNK
     Route: 065

REACTIONS (1)
  - ATRIAL FIBRILLATION [None]
